FAERS Safety Report 21936054 (Version 1)
Quarter: 2023Q1

REPORT INFORMATION
  Report Type: Report from Study
  Country: ZA (occurrence: ZA)
  Receive Date: 20230201
  Receipt Date: 20230201
  Transmission Date: 20230417
  Serious: Yes (Disabling, Other)
  Sender: FDA-Public Use
  Company Number: ZA-002147023-NVSC2023ZA016680

PATIENT
  Age: 39 Year
  Sex: Female

DRUGS (2)
  1. FINGOLIMOD HYDROCHLORIDE [Suspect]
     Active Substance: FINGOLIMOD HYDROCHLORIDE
     Indication: Relapsing-remitting multiple sclerosis
     Dosage: 0.5 MG, QD
     Route: 048
     Dates: start: 20211106
  2. METHYLPREDNISOLONE [Concomitant]
     Active Substance: METHYLPREDNISOLONE
     Indication: Product used for unknown indication
     Dosage: UNK
     Route: 042

REACTIONS (11)
  - Condition aggravated [Unknown]
  - CSF lymphocyte count abnormal [Unknown]
  - CSF protein abnormal [Unknown]
  - Blood immunoglobulin G increased [Unknown]
  - CSF oligoclonal band present [Unknown]
  - Magnetic resonance imaging head abnormal [Unknown]
  - Congenital central nervous system anomaly [Unknown]
  - Intervertebral disc protrusion [Unknown]
  - Myelopathy [Unknown]
  - Gait disturbance [Unknown]
  - Cervical radiculopathy [Unknown]
